FAERS Safety Report 18345234 (Version 14)
Quarter: 2021Q1

REPORT INFORMATION
  Report Type: Report from Study
  Country: CN (occurrence: CN)
  Receive Date: 20201005
  Receipt Date: 20210119
  Transmission Date: 20210419
  Serious: Yes (Death, Hospitalization)
  Sender: FDA-Public Use
  Company Number: CN-EISAI MEDICAL RESEARCH-EC-2020-081571

PATIENT
  Age: 65 Year
  Sex: Male
  Weight: 51 kg

DRUGS (7)
  1. PEMBROLIZUMAB. [Suspect]
     Active Substance: PEMBROLIZUMAB
     Indication: HEPATOCELLULAR CARCINOMA
     Route: 041
     Dates: start: 20200122, end: 20200618
  2. SHA GAN CHUN PIAN JI [Concomitant]
     Dates: start: 20200710, end: 20201024
  3. ENTECAVIR. [Concomitant]
     Active Substance: ENTECAVIR
     Dates: start: 20160921, end: 20201024
  4. PEMBROLIZUMAB. [Suspect]
     Active Substance: PEMBROLIZUMAB
     Route: 041
     Dates: start: 20200730
  5. PEMBROLIZUMAB. [Suspect]
     Active Substance: PEMBROLIZUMAB
     Route: 041
     Dates: start: 20200709, end: 20200709
  6. NIFEDIPINE. [Concomitant]
     Active Substance: NIFEDIPINE
     Dates: start: 20200107, end: 20201024
  7. LENVATINIB [Suspect]
     Active Substance: LENVATINIB
     Indication: HEPATOCELLULAR CARCINOMA
     Route: 048
     Dates: start: 20200122

REACTIONS (1)
  - Hepatic function abnormal [Not Recovered/Not Resolved]

NARRATIVE: CASE EVENT DATE: 20200729
